FAERS Safety Report 19149659 (Version 1)
Quarter: 2021Q2

REPORT INFORMATION
  Report Type: Report from Study
  Country: US (occurrence: US)
  Receive Date: 20210417
  Receipt Date: 20210417
  Transmission Date: 20210717
  Serious: Yes (Life-Threatening, Other)
  Sender: FDA-Public Use
  Company Number: US-AUROBINDO-AUR-APL-2021-015533

PATIENT
  Age: 42 Year
  Sex: Female
  Weight: 69.4 kg

DRUGS (2)
  1. GUADECITABINE [Suspect]
     Active Substance: GUADECITABINE
     Indication: CHONDROSARCOMA
     Dosage: UNK
     Route: 065
     Dates: start: 20210201
  2. BELINOSTAT [Suspect]
     Active Substance: BELINOSTAT
     Indication: CHONDROSARCOMA
     Dosage: UNK
     Route: 065
     Dates: start: 20210301

REACTIONS (2)
  - Neutrophil count decreased [Recovering/Resolving]
  - White blood cell count decreased [Recovering/Resolving]

NARRATIVE: CASE EVENT DATE: 20210316
